FAERS Safety Report 9074499 (Version 1)
Quarter: 2013Q1

REPORT INFORMATION
  Report Type: Spontaneous
  Country: US (occurrence: US)
  Receive Date: 20130129
  Receipt Date: 20130129
  Transmission Date: 20140127
  Serious: No
  Sender: FDA-Public Use
  Company Number: US-ABBOTT-12P-163-0926081-00

PATIENT
  Age: 79 None
  Sex: Female
  Weight: 52.21 kg

DRUGS (6)
  1. HUMIRA 40 MG/0.8 ML PEN [Suspect]
     Indication: PSORIASIS
     Route: 058
     Dates: start: 20120326
  2. HUMIRA 40 MG/0.8 ML PEN [Suspect]
     Route: 058
     Dates: start: 201204, end: 201204
  3. TRIAMTERENE/HCTZ [Concomitant]
     Indication: HYPERTENSION
  4. HYPOTHYROID MEDICATION [Concomitant]
     Indication: HYPOTHYROIDISM
  5. T-GEL SHAMPOO [Concomitant]
     Indication: PSORIASIS
  6. UREA [Concomitant]
     Indication: PSORIASIS

REACTIONS (4)
  - Arthralgia [Unknown]
  - Pain in extremity [Unknown]
  - Oedema peripheral [Recovering/Resolving]
  - Dyspnoea [Not Recovered/Not Resolved]
